FAERS Safety Report 9108916 (Version 1)
Quarter: 2013Q1

REPORT INFORMATION
  Report Type: Spontaneous
  Country: BR (occurrence: BR)
  Receive Date: 20130222
  Receipt Date: 20130222
  Transmission Date: 20140127
  Serious: Yes (Hospitalization)
  Sender: FDA-Public Use
  Company Number: BR-JNJFOC-20130204568

PATIENT
  Age: 59 Year
  Sex: Female
  Weight: 94 kg

DRUGS (1)
  1. LEVAQUIN [Suspect]
     Indication: PNEUMONIA
     Dosage: 500MG/100ML; HEALTH PLAN
     Route: 065
     Dates: start: 20121218, end: 20121224

REACTIONS (2)
  - Localised oedema [Recovered/Resolved]
  - Tongue oedema [Recovered/Resolved]
